FAERS Safety Report 6384200-X (Version None)
Quarter: 2009Q4

REPORT INFORMATION
  Report Type: 
  Country: None (occurrence: None)
  Receive Date: 20091001
  Receipt Date: 20090922
  Transmission Date: 20100525
  Serious: Yes (Death, Hospitalization)
  Sender: FDA-Public Use
  Company Number: A0808746A

PATIENT
  Age: 58 Year
  Sex: Male

DRUGS (5)
  1. AVANDIA [Suspect]
     Dosage: 4MG PER DAY
     Route: 065
     Dates: start: 20000901, end: 20040601
  2. TOPROL-XL [Concomitant]
     Dosage: 50MG PER DAY
  3. CARDIZEM CD [Concomitant]
     Dosage: 180MG PER DAY
  4. PLAVIX [Concomitant]
     Dosage: 75MG PER DAY
  5. ASPIRIN [Concomitant]
     Dosage: 81MG PER DAY

REACTIONS (4)
  - ATRIAL FIBRILLATION [None]
  - CARDIAC FAILURE CONGESTIVE [None]
  - CARDIOMYOPATHY [None]
  - DEATH [None]
